FAERS Safety Report 15289463 (Version 1)
Quarter: 2018Q3

REPORT INFORMATION
  Report Type: Spontaneous
  Country: GB (occurrence: GB)
  Receive Date: 20180817
  Receipt Date: 20180817
  Transmission Date: 20181010
  Serious: Yes (Life-Threatening)
  Sender: FDA-Public Use
  Company Number: GB-TEVA-2018-GB-942857

PATIENT
  Age: 45 Year
  Sex: Female
  Weight: 60 kg

DRUGS (2)
  1. NORTRIPTYLINE [Suspect]
     Active Substance: NORTRIPTYLINE
     Dosage: 10 MILLIGRAM DAILY; AT 8 PM
     Route: 048
     Dates: start: 20180223
  2. NORTRIPTYLINE [Suspect]
     Active Substance: NORTRIPTYLINE
     Indication: NEURALGIA
     Dosage: 20 MILLIGRAM, AT APPROXIMATELY 8PM
     Route: 048
     Dates: end: 20180317

REACTIONS (4)
  - Loss of consciousness [Recovered/Resolved]
  - Hyperventilation [Recovered/Resolved]
  - Tetany [Recovered/Resolved]
  - Feeling abnormal [Recovered/Resolved]

NARRATIVE: CASE EVENT DATE: 20180223
